FAERS Safety Report 7774982-4 (Version None)
Quarter: 2011Q3

REPORT INFORMATION
  Report Type: 
  Country: None (occurrence: None)
  Receive Date: 20110923
  Receipt Date: 20110914
  Transmission Date: 20111222
  Serious: Yes (Hospitalization)
  Sender: FDA-Public Use
  Company Number: US-US-EMD SERONO, INC.-7012376

PATIENT
  Sex: Female
  Weight: 95 kg

DRUGS (10)
  1. ALBUTEROL [Concomitant]
     Indication: ASTHMA
  2. TOPAMAX [Concomitant]
     Indication: MIGRAINE
  3. CELEBREX [Concomitant]
     Indication: OSTEOARTHRITIS
  4. VICODIN [Concomitant]
     Indication: PREMEDICATION
  5. MS IR (MORPHINE) [Concomitant]
     Indication: PAIN
  6. CYMBALTA [Concomitant]
     Indication: PAIN
  7. REBIF [Suspect]
     Indication: RELAPSING-REMITTING MULTIPLE SCLEROSIS
     Route: 058
     Dates: start: 20091201
  8. PEPCID [Concomitant]
     Indication: GASTROOESOPHAGEAL REFLUX DISEASE
  9. PROPRANOLOL [Concomitant]
     Indication: TREMOR
  10. CELEBREX [Concomitant]
     Indication: FIBROMYALGIA

REACTIONS (9)
  - PAIN [None]
  - INJECTION SITE ERYTHEMA [None]
  - BALANCE DISORDER [None]
  - DIPLOPIA [None]
  - CHRONIC OBSTRUCTIVE PULMONARY DISEASE [None]
  - ASTHENIA [None]
  - PYREXIA [None]
  - GASTROENTERITIS [None]
  - INJECTION SITE PAIN [None]
